FAERS Safety Report 11872404 (Version 1)
Quarter: 2015Q4

REPORT INFORMATION
  Report Type: Spontaneous
  Country: FR (occurrence: FR)
  Receive Date: 20151228
  Receipt Date: 20151228
  Transmission Date: 20160305
  Serious: Yes (Hospitalization)
  Sender: FDA-Public Use
  Company Number: FR-PFIZER INC-2015463762

PATIENT
  Age: 74 Year
  Sex: Female

DRUGS (7)
  1. STILNOX [Concomitant]
     Active Substance: ZOLPIDEM TARTRATE
     Dosage: 0.5 DF, DAILY
  2. VELCADE [Suspect]
     Active Substance: BORTEZOMIB
     Indication: PLASMA CELL MYELOMA RECURRENT
     Dosage: UNK, CYCLIC
     Route: 042
     Dates: start: 20150324, end: 20150526
  3. ENDOXAN /00021101/ [Suspect]
     Active Substance: CYCLOPHOSPHAMIDE
     Indication: PLASMA CELL MYELOMA RECURRENT
     Dosage: UNK, CYCLIC
     Route: 042
     Dates: start: 20150324, end: 20150526
  4. ZELITREX [Concomitant]
     Active Substance: VALACYCLOVIR HYDROCHLORIDE
     Dosage: 1 DF, ALTERNATE DAY
  5. MEDROL [Suspect]
     Active Substance: METHYLPREDNISOLONE
     Indication: PLASMA CELL MYELOMA RECURRENT
     Dosage: UNK, CYCLIC
     Route: 048
     Dates: start: 20150324, end: 20150526
  6. SOTALOL ARROW [Concomitant]
     Dosage: 160 MG, DAILY
     Route: 048
  7. RAMIPRIL MYLAN [Concomitant]
     Active Substance: RAMIPRIL
     Dosage: 1.25 MG, 1X/DAY
     Route: 048

REACTIONS (5)
  - Hypokalaemia [Recovered/Resolved]
  - Acute prerenal failure [Recovered/Resolved]
  - Diarrhoea [Recovered/Resolved]
  - Dehydration [Recovered/Resolved]
  - Hyponatraemia [Recovered/Resolved]

NARRATIVE: CASE EVENT DATE: 201505
